FAERS Safety Report 12495823 (Version 1)
Quarter: 2016Q2

REPORT INFORMATION
  Report Type: Spontaneous
  Country: US (occurrence: None)
  Receive Date: 20160623
  Receipt Date: 20160623
  Transmission Date: 20160815
  Serious: Yes (Hospitalization)
  Sender: FDA-Public Use
  Company Number: None

PATIENT
  Age: 45 Year
  Sex: Male
  Weight: 159.1 kg

DRUGS (1)
  1. TRAMADOL. [Suspect]
     Active Substance: TRAMADOL
     Indication: PAIN
     Route: 048
     Dates: start: 20160321, end: 20160408

REACTIONS (5)
  - Confusional state [None]
  - Temporal lobe epilepsy [None]
  - Meningitis [None]
  - Hallucination, visual [None]
  - Memory impairment [None]

NARRATIVE: CASE EVENT DATE: 20160401
